FAERS Safety Report 7463104-5 (Version None)
Quarter: 2011Q2

REPORT INFORMATION
  Report Type: 
  Country: None (occurrence: None)
  Receive Date: 20110506
  Receipt Date: 20110427
  Transmission Date: 20111010
  Serious: Yes (Hospitalization)
  Sender: FDA-Public Use
  Company Number: JP-B.I. PHARMACEUTICALS,INC./RIDGEFIELD-2011-BP-09460NB

PATIENT
  Sex: Male
  Weight: 50 kg

DRUGS (12)
  1. MICARDIS [Suspect]
     Indication: NEPHRITIS
     Dosage: 40 MG
     Route: 048
     Dates: start: 20091013, end: 20110326
  2. ARGAMATE [Concomitant]
     Indication: NEPHRITIS
     Dosage: 25 G
     Route: 048
  3. ALFAROL [Concomitant]
     Indication: NEPHRITIS
     Dosage: 0.5 MCG
     Route: 048
     Dates: start: 20060101
  4. FRANDOL [Concomitant]
     Indication: CARDIAC FAILURE CHRONIC
     Dosage: 1 DF
     Route: 062
     Dates: start: 20040101
  5. SIGMART [Concomitant]
     Indication: CARDIAC FAILURE CHRONIC
     Dosage: 10 MG
     Route: 048
     Dates: start: 20040101
  6. THYRADIN [Concomitant]
     Indication: HYPERTHYROIDISM
     Dosage: 150 MCG
     Route: 048
     Dates: start: 19990101
  7. CALTAN [Concomitant]
     Indication: NEPHRITIS
     Dosage: 1.5 G
     Route: 048
     Dates: start: 20060101
  8. SOLDOL [Concomitant]
     Dosage: 12 MG
     Route: 048
  9. PREDONINE [Concomitant]
     Indication: ANTI-NEUTROPHIL CYTOPLASMIC ANTIBODY POSITIVE VASCULITIS
     Dosage: 5 MG
     Route: 048
     Dates: start: 19990101
  10. ATELEC [Concomitant]
     Indication: HYPERTENSION
     Dosage: 20 MG
     Route: 048
     Dates: start: 20050101
  11. AMOBAN [Concomitant]
     Dosage: 7.5 MG
     Route: 048
  12. RENAGEL [Concomitant]
     Indication: NEPHRITIS
     Dosage: 2 G
     Route: 048
     Dates: start: 20060101

REACTIONS (2)
  - POST GASTRIC SURGERY SYNDROME [None]
  - HYPOGLYCAEMIA [None]
